FAERS Safety Report 4637855-1 (Version None)
Quarter: 2005Q2

REPORT INFORMATION
  Report Type: 
  Country: None (occurrence: None)
  Receive Date: 20050328
  Receipt Date: 20041230
  Transmission Date: 20051028
  Serious: No
  Sender: FDA-Public Use
  Company Number: USA050187237

PATIENT
  Age: 40 Year
  Sex: Male

DRUGS (1)
  1. STRATTERA [Suspect]
     Dosage: 40 MG DAY
     Dates: start: 20040101

REACTIONS (3)
  - DYSURIA [None]
  - PENIS DISORDER [None]
  - TESTICULAR ATROPHY [None]
